FAERS Safety Report 17829917 (Version 1)
Quarter: 2020Q2

REPORT INFORMATION
  Report Type: Spontaneous
  Country: CA (occurrence: CA)
  Receive Date: 20200527
  Receipt Date: 20200527
  Transmission Date: 20200714
  Serious: Yes (Other)
  Sender: FDA-Public Use
  Company Number: CA-TEVA-2020-CA-1239674

PATIENT
  Age: 58 Year
  Sex: Male
  Weight: 70 kg

DRUGS (1)
  1. DOCETAXEL. [Suspect]
     Active Substance: DOCETAXEL
     Indication: CHEMOTHERAPY
     Route: 042

REACTIONS (5)
  - Throat irritation [Recovered/Resolved]
  - Throat tightness [Recovered/Resolved]
  - Cough [Recovered/Resolved]
  - Blood pressure increased [Recovered/Resolved]
  - Dyspnoea [Recovered/Resolved]
